FAERS Safety Report 8054813-8 (Version None)
Quarter: 2012Q1

REPORT INFORMATION
  Report Type: 
  Country: None (occurrence: None)
  Receive Date: 20120119
  Receipt Date: 20120105
  Transmission Date: 20120608
  Serious: Yes (Hospitalization, Other)
  Sender: FDA-Public Use
  Company Number: CA-JNJFOC-20120106523

PATIENT
  Sex: Male
  Weight: 110.5 kg

DRUGS (5)
  1. IBUPROFEN (ADVIL) [Concomitant]
     Route: 065
  2. ACETAMINOPHEN [Concomitant]
     Route: 065
  3. PREDNISONE [Concomitant]
     Route: 065
  4. REMICADE [Suspect]
     Indication: CROHN'S DISEASE
     Route: 042
     Dates: start: 20041109
  5. REMICADE [Suspect]
     Route: 042
     Dates: start: 20111006

REACTIONS (2)
  - WEIGHT DECREASED [None]
  - SMALL INTESTINAL OBSTRUCTION [None]
